FAERS Safety Report 6614052-1 (Version None)
Quarter: 2010Q1

REPORT INFORMATION
  Report Type: 
  Country: None (occurrence: None)
  Receive Date: 20100304
  Receipt Date: 20100220
  Transmission Date: 20100710
  Serious: Yes (Hospitalization, Other)
  Sender: FDA-Public Use
  Company Number: PHHY2010VE10087

PATIENT
  Sex: Female

DRUGS (7)
  1. DIOVAN [Suspect]
     Indication: HYPERTENSION
     Dosage: 80 MG, UNK
     Route: 048
     Dates: start: 20080101
  2. DIOVAN [Suspect]
  3. DIOVAN [Suspect]
     Dosage: 320 MG PER DAY
     Dates: start: 20090501
  4. ATENOLOL [Concomitant]
     Dosage: 25 MG, QD
     Dates: start: 20080101
  5. CATAPRESAN [Concomitant]
     Dosage: THREE TIMES A DAY
     Dates: start: 20080101
  6. LIPITOR [Concomitant]
     Dosage: 80 MG, QD
     Dates: start: 20080101
  7. PLAVIX [Concomitant]
     Dosage: ONCE A DAY
     Dates: start: 20080101

REACTIONS (2)
  - GASTROINTESTINAL HAEMORRHAGE [None]
  - HYPERGLYCAEMIA [None]
